FAERS Safety Report 7811486-4 (Version None)
Quarter: 2011Q4

REPORT INFORMATION
  Report Type: 
  Country: None (occurrence: None)
  Receive Date: 20111013
  Receipt Date: 20111013
  Transmission Date: 20120403
  Serious: Yes (Other)
  Sender: FDA-Public Use
  Company Number: None

PATIENT
  Age: 53 Year
  Sex: Female
  Weight: 58.9 kg

DRUGS (3)
  1. DOXORUBICIN HCL [Concomitant]
     Indication: BREAST CANCER STAGE II
     Dates: start: 19970213, end: 19970328
  2. CYCLOPHOSPHAMIDE [Suspect]
     Indication: BREAST CANCER STAGE II
     Dates: start: 19970213, end: 19970327
  3. NEUPOGEN [Concomitant]

REACTIONS (1)
  - MALIGNANT MELANOMA [None]
